FAERS Safety Report 24200632 (Version 1)
Quarter: 2024Q3

REPORT INFORMATION
  Report Type: Spontaneous
  Country: US (occurrence: US)
  Receive Date: 20240812
  Receipt Date: 20240812
  Transmission Date: 20241016
  Serious: No
  Sender: ANI
  Company Number: US-ANIPHARMA-2024-US-037217

PATIENT
  Age: 49 Year
  Sex: Female
  Weight: 75.3 kg

DRUGS (17)
  1. CORTICOTROPIN [Suspect]
     Active Substance: CORTICOTROPIN
     Indication: Psoriatic arthropathy
     Dosage: 80 UNITS EVERY THREE DAYS SUBCUTANEOUS
     Route: 058
     Dates: start: 202406
  2. SYNTHROID [Concomitant]
     Active Substance: LEVOTHYROXINE SODIUM
  3. TALTZ [Concomitant]
     Active Substance: IXEKIZUMAB
  4. MOBIC [Concomitant]
     Active Substance: MELOXICAM
  5. OXYBUTYNIN CHLORIDE [Concomitant]
     Active Substance: OXYBUTYNIN CHLORIDE
  6. ESTRADIOL [Concomitant]
     Active Substance: ESTRADIOL
  7. CRESTOR [Concomitant]
     Active Substance: ROSUVASTATIN CALCIUM
  8. PREDNISONE [Concomitant]
     Active Substance: PREDNISONE
  9. TEZSPIRE [Concomitant]
     Active Substance: TEZEPELUMAB-EKKO
  10. HUMALOG [Concomitant]
     Active Substance: INSULIN LISPRO
  11. MONTELUKAST SODIUM [Concomitant]
     Active Substance: MONTELUKAST SODIUM
  12. NEUROPEN [Concomitant]
  13. ULTRAM [Concomitant]
     Active Substance: TRAMADOL HYDROCHLORIDE
  14. CETIRIZINE HCL [Concomitant]
     Active Substance: CETIRIZINE HYDROCHLORIDE
  15. PANTOPRAZOLE SODIUM [Concomitant]
     Active Substance: PANTOPRAZOLE SODIUM
  16. TRIAMTERENE [Concomitant]
     Active Substance: TRIAMTERENE
  17. PRISTIQ EXTENDED-RELEASE [Concomitant]
     Active Substance: DESVENLAFAXINE SUCCINATE

REACTIONS (4)
  - Product dose omission issue [Unknown]
  - Viral infection [Unknown]
  - Pancreatitis [Unknown]
  - Contraindicated product administered [Not Recovered/Not Resolved]

NARRATIVE: CASE EVENT DATE: 20240601
